FAERS Safety Report 7422501-4 (Version None)
Quarter: 2011Q2

REPORT INFORMATION
  Report Type: 
  Country: None (occurrence: None)
  Receive Date: 20110419
  Receipt Date: 20080723
  Transmission Date: 20111010
  Serious: No
  Sender: FDA-Public Use
  Company Number: 2007BI021481

PATIENT
  Sex: Female

DRUGS (5)
  1. TYSABRI [Suspect]
     Indication: MULTIPLE SCLEROSIS
     Route: 042
     Dates: start: 20061005
  2. FENTANYL-100 [Concomitant]
     Indication: PAIN
  3. TOPROL-XL [Concomitant]
  4. AVONEX [Concomitant]
     Indication: MULTIPLE SCLEROSIS
     Route: 030
     Dates: start: 19951115
  5. TYSABRI [Suspect]
     Route: 042
     Dates: start: 20061005

REACTIONS (2)
  - HYPOTENSION [None]
  - URINARY TRACT INFECTION [None]
